FAERS Safety Report 4358292-3 (Version None)
Quarter: 2004Q2

REPORT INFORMATION
  Report Type: 
  Country: None (occurrence: None)
  Receive Date: 20040511
  Receipt Date: 20040504
  Transmission Date: 20050107
  Serious: Yes (Hospitalization)
  Sender: FDA-Public Use
  Company Number: MK200405-0020-1

PATIENT
  Age: 54 Year
  Sex: Female

DRUGS (1)
  1. METHADOSE [Suspect]

REACTIONS (13)
  - ABDOMINAL PAIN [None]
  - ANAEMIA [None]
  - CONSTIPATION [None]
  - DIARRHOEA [None]
  - FAECAL INCONTINENCE [None]
  - FIBROSIS [None]
  - FLATULENCE [None]
  - ISCHAEMIA [None]
  - NECROSIS [None]
  - POST PROCEDURAL COMPLICATION [None]
  - POSTOPERATIVE FEVER [None]
  - RECTAL HAEMORRHAGE [None]
  - RECTAL PROLAPSE [None]
